FAERS Safety Report 4602058-3 (Version None)
Quarter: 2005Q1

REPORT INFORMATION
  Report Type: 
  Country: None (occurrence: None)
  Receive Date: 20050214
  Receipt Date: 20041119
  Transmission Date: 20050727
  Serious: Yes (Hospitalization)
  Sender: FDA-Public Use
  Company Number: 8007308

PATIENT
  Age: 9 Year
  Sex: Female
  Weight: 36.36 kg

DRUGS (3)
  1. KEPPRA [Suspect]
     Indication: PETIT MAL EPILEPSY
     Dosage: 500 MG ONCE PO
     Route: 048
     Dates: start: 20040909, end: 20040909
  2. KEPPRA [Suspect]
     Indication: PETIT MAL EPILEPSY
     Dosage: 1250 MG PO
     Route: 048
     Dates: start: 20040910, end: 20040915
  3. KEPPRA [Suspect]
     Indication: PETIT MAL EPILEPSY
     Dosage: 125 MG 2/D PO
     Route: 048
     Dates: start: 20040916

REACTIONS (3)
  - CONSTIPATION [None]
  - GASTROENTERITIS VIRAL [None]
  - SOMNOLENCE [None]
